FAERS Safety Report 15689184 (Version 3)
Quarter: 2019Q3

REPORT INFORMATION
  Report Type: Spontaneous
  Country: DE (occurrence: DE)
  Receive Date: 20181205
  Receipt Date: 20190701
  Transmission Date: 20191004
  Serious: Yes (Congenital Anomaly)
  Sender: FDA-Public Use
  Company Number: PHHY2018DE172073

PATIENT
  Sex: Female

DRUGS (4)
  1. LEVETIRACETAM. [Suspect]
     Active Substance: LEVETIRACETAM
     Dosage: MATERNAL DOSE: 3 OT, QD (1500-1000-1500 (4000MG DAILY) 3X/DAY (TID))
     Route: 064
     Dates: start: 20171213, end: 20180101
  2. LEVETIRACETAM. [Suspect]
     Active Substance: LEVETIRACETAM
     Dosage: MATRENAL DOSE: 3000 MG QD, (1500 MG, 2X/DAY (BID)
     Route: 064
     Dates: start: 20171205, end: 201712
  3. VALPROAT [Concomitant]
     Active Substance: VALPROATE SODIUM
     Indication: FOETAL EXPOSURE DURING PREGNANCY
     Dosage: UNK
     Route: 064
  4. LEVETIRACETAM. [Suspect]
     Active Substance: LEVETIRACETAM
     Indication: FOETAL EXPOSURE DURING PREGNANCY
     Dosage: MATERNAL DOSE: 1000 MG, 2X/DAY (BID)
     Route: 064
     Dates: start: 20170607, end: 201712

REACTIONS (2)
  - Foetal exposure during pregnancy [Unknown]
  - Ear malformation [Unknown]

NARRATIVE: CASE EVENT DATE: 20170607
